FAERS Safety Report 24131059 (Version 1)
Quarter: 2024Q3

REPORT INFORMATION
  Report Type: Spontaneous
  Country: FR (occurrence: FR)
  Receive Date: 20240724
  Receipt Date: 20240724
  Transmission Date: 20241017
  Serious: Yes (Hospitalization, Other)
  Sender: AUROBINDO
  Company Number: FR-AFSSAPS-AVLY2024000099

PATIENT
  Age: 44 Year
  Sex: Male
  Weight: 80 kg

DRUGS (8)
  1. METHYLPHENIDATE [Suspect]
     Active Substance: METHYLPHENIDATE
     Indication: Product used for unknown indication
     Dosage: 1 DOSAGE FORM, AS NECESSARY
     Route: 065
  2. KETAMINE [Suspect]
     Active Substance: KETAMINE
     Indication: Product used for unknown indication
     Dosage: 1 DOSAGE FORM, AS NECESSARY
     Route: 065
  3. CANNABIS SATIVA SUBSP. INDICA TOP [Suspect]
     Active Substance: CANNABIS SATIVA SUBSP. INDICA TOP
     Indication: Product used for unknown indication
     Dosage: 3 DOSAGE FORM, ONCE A DAY
     Dates: start: 1995
  4. HEROIN [Suspect]
     Active Substance: DIAMORPHINE
     Indication: Product used for unknown indication
     Dosage: 1 DOSAGE FORM, AS NECESSARY
     Route: 042
     Dates: start: 1998, end: 202204
  5. METHADONE HYDROCHLORIDE [Suspect]
     Active Substance: METHADONE HYDROCHLORIDE
     Indication: Product used for unknown indication
     Dosage: 1 DOSAGE FORM, AS NECESSARY
     Route: 065
  6. MIDOMAFETAMINE [Suspect]
     Active Substance: MIDOMAFETAMINE
     Indication: Product used for unknown indication
     Dosage: 1 DOSAGE FORM, AS NECESSARY
     Route: 065
  7. COCAINE [Suspect]
     Active Substance: COCAINE
     Indication: Product used for unknown indication
     Dosage: 1 DOSAGE FORM, AS NECESSARY
     Route: 045
     Dates: start: 2000
  8. COCAINE [Suspect]
     Active Substance: COCAINE
     Dosage: 1 DOSAGE FORM, AS NECESSARY
     Route: 051
     Dates: start: 2023

REACTIONS (2)
  - Drug dependence [Not Recovered/Not Resolved]
  - Substance use [Not Recovered/Not Resolved]

NARRATIVE: CASE EVENT DATE: 19950101
